FAERS Safety Report 18247900 (Version 1)
Quarter: 2020Q3

REPORT INFORMATION
  Report Type: Spontaneous
  Country: US (occurrence: US)
  Receive Date: 20200909
  Receipt Date: 20200909
  Transmission Date: 20201103
  Serious: Yes (Other)
  Sender: FDA-Public Use
  Company Number: US-AMNEAL PHARMACEUTICALS-2020-AMRX-02675

PATIENT
  Sex: Female

DRUGS (2)
  1. RANITIDINE. [Suspect]
     Active Substance: RANITIDINE
     Indication: GASTRIC DISORDER
  2. RANITIDINE. [Suspect]
     Active Substance: RANITIDINE
     Indication: HEPATITIS C
     Dosage: UNK
     Route: 065

REACTIONS (8)
  - Gastrointestinal carcinoma [Unknown]
  - Product use in unapproved indication [Unknown]
  - Skin cancer [Unknown]
  - Liver disorder [Unknown]
  - Cyst [Unknown]
  - Pain [Unknown]
  - Ocular neoplasm [Unknown]
  - Hypersomnia [Unknown]
